FAERS Safety Report 25866832 (Version 1)
Quarter: 2025Q4

REPORT INFORMATION
  Report Type: Report from Study
  Country: US (occurrence: US)
  Receive Date: 20251001
  Receipt Date: 20251001
  Transmission Date: 20260118
  Serious: Yes (Hospitalization, Other)
  Sender: ABBVIE
  Company Number: US-ABBVIE-6481847

PATIENT
  Sex: Male

DRUGS (2)
  1. CREON [Suspect]
     Active Substance: PANCRELIPASE AMYLASE\PANCRELIPASE LIPASE\PANCRELIPASE PROTEASE
     Indication: Pancreatic failure
     Route: 048
  2. VIOKASE [Concomitant]
     Active Substance: PANCRELIPASE
     Indication: Product used for unknown indication

REACTIONS (2)
  - Enteral nutrition [Unknown]
  - Hospitalisation [Unknown]
